FAERS Safety Report 12821727 (Version 1)
Quarter: 2016Q4

REPORT INFORMATION
  Report Type: Report from Study
  Country: US (occurrence: US)
  Receive Date: 20161007
  Receipt Date: 20161007
  Transmission Date: 20170207
  Serious: Yes (Hospitalization, Other)
  Sender: FDA-Public Use
  Company Number: US-ROCHE-1643446

PATIENT
  Age: 58 Year
  Sex: Female
  Weight: 109.3 kg

DRUGS (9)
  1. VELIPARIB [Suspect]
     Active Substance: VELIPARIB
     Dosage: (TA 19), COURSE 3
     Route: 048
     Dates: start: 20150619
  2. PACLITAXEL. [Suspect]
     Active Substance: PACLITAXEL
     Indication: OVARIAN EPITHELIAL CANCER
     Dosage: OVER 3 HRS ON DAY 1?LAST ADMINISTERED DOSE ON 17/JUL/2015
     Route: 042
     Dates: start: 20150508
  3. VELIPARIB [Suspect]
     Active Substance: VELIPARIB
     Indication: OVARIAN EPITHELIAL CANCER
     Dosage: ON DAYS -2-5?CYCLE 1?LAST ADMINISTERED DOSE ON 21/JUL/2015, TREATMENT ASSIGNMENT CODE (TA 19), COURS
     Route: 048
     Dates: start: 20150508
  4. BEVACIZUMAB [Suspect]
     Active Substance: BEVACIZUMAB
     Dosage: (TA 19), COURSE 3
     Route: 042
     Dates: start: 20150619
  5. BEVACIZUMAB [Suspect]
     Active Substance: BEVACIZUMAB
     Dosage: (TA 19), COURSE 4
     Route: 042
     Dates: start: 20150717
  6. BEVACIZUMAB [Suspect]
     Active Substance: BEVACIZUMAB
     Indication: OVARIAN EPITHELIAL CANCER
     Dosage: OVER 30-90 MINS ON DAY 1?CYCLE 2-6 AND CYCLE 7-22
     Route: 042
  7. VELIPARIB [Suspect]
     Active Substance: VELIPARIB
     Dosage: (TA 19), COURSE 2
     Route: 048
     Dates: start: 20150529
  8. CARBOPLATIN. [Suspect]
     Active Substance: CARBOPLATIN
     Indication: OVARIAN EPITHELIAL CANCER
     Dosage: 6 IV OVER 30 MINS ON DAY 1?CYCLE 1?LAST ADMINISTERED DOSE ON 17/JUL/2015
     Route: 042
     Dates: start: 20150508
  9. VELIPARIB [Suspect]
     Active Substance: VELIPARIB
     Dosage: (TA 19), COURSE 4
     Route: 048
     Dates: start: 20150717

REACTIONS (13)
  - Constipation [Unknown]
  - Atrial fibrillation [Unknown]
  - Pain in extremity [Unknown]
  - Hypertension [Unknown]
  - Constipation [Recovered/Resolved with Sequelae]
  - Abdominal pain [Recovered/Resolved with Sequelae]
  - Neutrophil count decreased [Unknown]
  - Platelet count decreased [Unknown]
  - White blood cell count decreased [Unknown]
  - Dehydration [Unknown]
  - Dehydration [Recovered/Resolved with Sequelae]
  - Atrial fibrillation [Recovered/Resolved with Sequelae]
  - Back pain [Unknown]

NARRATIVE: CASE EVENT DATE: 20150723
